FAERS Safety Report 7783132-X (Version None)
Quarter: 2011Q3

REPORT INFORMATION
  Report Type: 
  Country: None (occurrence: None)
  Receive Date: 20110928
  Receipt Date: 20110923
  Transmission Date: 20111222
  Serious: Yes (Death)
  Sender: FDA-Public Use
  Company Number: PHHY2011BR85048

PATIENT
  Sex: Female

DRUGS (2)
  1. EXFORGE [Suspect]
     Dosage: UNK UKN, UNK
  2. VITALUX PLUS [Suspect]
     Dosage: UNK

REACTIONS (1)
  - DEATH [None]
